FAERS Safety Report 13676738 (Version 2)
Quarter: 2017Q2

REPORT INFORMATION
  Report Type: Spontaneous
  Country: US (occurrence: US)
  Receive Date: 20170622
  Receipt Date: 20170626
  Transmission Date: 20170830
  Serious: No
  Sender: FDA-Public Use
  Company Number: US-PFIZER INC-2017271028

PATIENT
  Age: 64 Year
  Sex: Female
  Weight: 111.13 kg

DRUGS (4)
  1. LYRICA [Suspect]
     Active Substance: PREGABALIN
     Indication: COMPLEX REGIONAL PAIN SYNDROME
     Dosage: 75 MG, UNK
  2. LYRICA [Suspect]
     Active Substance: PREGABALIN
     Indication: PARAESTHESIA
     Dosage: 200MG CAPSULES, TWICE PER DAY
     Route: 048
     Dates: start: 201705
  3. SYNTHROID [Concomitant]
     Active Substance: LEVOTHYROXINE SODIUM
     Indication: HYPOTHYROIDISM
     Dosage: 88 MG, DAILY
  4. LYRICA [Suspect]
     Active Substance: PREGABALIN
     Indication: NEUROPATHY PERIPHERAL
     Dosage: 300 MG, UNK

REACTIONS (6)
  - Epistaxis [Recovered/Resolved]
  - Vision blurred [Unknown]
  - Peripheral swelling [Not Recovered/Not Resolved]
  - Muscle twitching [Recovering/Resolving]
  - Ear haemorrhage [Unknown]
  - Ear pain [Unknown]

NARRATIVE: CASE EVENT DATE: 201705
